FAERS Safety Report 6544783-3 (Version None)
Quarter: 2010Q1

REPORT INFORMATION
  Report Type: 
  Country: None (occurrence: None)
  Receive Date: 20100121
  Receipt Date: 20100116
  Transmission Date: 20100710
  Serious: Yes (Hospitalization)
  Sender: FDA-Public Use
  Company Number: JP-BRISTOL-MYERS SQUIBB COMPANY-14939813

PATIENT
  Age: 69 Year
  Sex: Male
  Weight: 50 kg

DRUGS (4)
  1. ERBITUX [Suspect]
     Indication: RECTAL CANCER
     Dosage: 400MG/M2 1IN1W ON 23JAN09 250MG/M2 1IN2W:6FEB-26JUN09, 1IN1W:3JUL09-ONG,MOST RECENT(15TH):17JUL09
     Route: 042
     Dates: start: 20090123, end: 20090123
  2. IRINOTECAN HCL [Concomitant]
     Indication: RECTAL CANCER
     Dosage: 150MG FROM 23JAN09-20FEB09 180MG FROM 06MAR09- MOST RECENT INF(13TH INF):10JUL09
     Route: 042
     Dates: start: 20090123
  3. POLARAMINE [Concomitant]
     Indication: PREMEDICATION
     Dosage: FORM = TAB 0.1429 MG(2 MG 1 IN 2 W) FROM 23JAN09-26JUN09 0.2857 MG (2 MG 1 IN 1 W) FROM 03JUL09-
     Route: 048
     Dates: start: 20090123
  4. DECADRON [Concomitant]
     Indication: PREMEDICATION
     Dosage: 0.5714MG(8MG 1 IN 2 W) FROM 23JAN09-26JUN09 1.1429 MG(8MG, 1 IN 1 W) FROM 03JUL09-
     Route: 042
     Dates: start: 20090123

REACTIONS (2)
  - DECREASED APPETITE [None]
  - MALAISE [None]
